FAERS Safety Report 17333831 (Version 1)
Quarter: 2020Q1

REPORT INFORMATION
  Report Type: Spontaneous
  Country: US (occurrence: US)
  Receive Date: 20200111
  Receipt Date: 20200111
  Transmission Date: 20200409
  Serious: Yes (Hospitalization)
  Sender: FDA-Public Use
  Company Number: None

PATIENT
  Sex: Male
  Weight: 70.7 kg

DRUGS (7)
  1. VINCRISTINE SULFATE. [Suspect]
     Active Substance: VINCRISTINE SULFATE
     Dates: end: 20191010
  2. HYDROCORTISONE. [Suspect]
     Active Substance: HYDROCORTISONE
     Dates: end: 20191011
  3. ERWINIA ASPARAGINASE [Suspect]
     Active Substance: ASPARAGINASE ERWINIA CHRYSANTHEMI
     Dates: end: 20190928
  4. METHOTREXATE. [Suspect]
     Active Substance: METHOTREXATE
     Dates: end: 20191011
  5. MITOXANTRONE HYDROCHLORIDE. [Suspect]
     Active Substance: MITOXANTRONE HYDROCHLORIDE
     Dates: end: 20190927
  6. CYTARABINE. [Suspect]
     Active Substance: CYTARABINE
     Dates: end: 20191011
  7. DEXAMETHASONE. [Suspect]
     Active Substance: DEXAMETHASONE

REACTIONS (14)
  - Pleural effusion [None]
  - Electrolyte imbalance [None]
  - Peritonitis [None]
  - Hyperbilirubinaemia [None]
  - Acute kidney injury [None]
  - Neutropenia [None]
  - Coagulopathy [None]
  - Colitis [None]
  - Consciousness fluctuating [None]
  - Capillary leak syndrome [None]
  - Multiple organ dysfunction syndrome [None]
  - Peripheral motor neuropathy [None]
  - Pseudomonas infection [None]
  - Respiratory depression [None]

NARRATIVE: CASE EVENT DATE: 20191021
